FAERS Safety Report 7889665-X (Version None)
Quarter: 2011Q4

REPORT INFORMATION
  Report Type: 
  Country: None (occurrence: None)
  Receive Date: 20111103
  Receipt Date: 20110826
  Transmission Date: 20120403
  Serious: Yes (Hospitalization, Disabling, Other)
  Sender: FDA-Public Use
  Company Number: PHHO2011AU14872

PATIENT
  Sex: Female

DRUGS (16)
  1. WARFARIN SODIUM [Concomitant]
     Dosage: UNK
     Dates: start: 20010801
  2. ESOMEPRAZOLE MAGNESIUM [Concomitant]
     Dosage: UNK
     Dates: start: 20020101
  3. TEMISARTAN [Concomitant]
     Dosage: UNK
     Dates: start: 20100601
  4. GLICLAZIDE [Concomitant]
     Dosage: UNK
     Dates: start: 20070701
  5. BLINDED NO TREATMENT RECEIVED [Suspect]
     Indication: BREAST CANCER
     Dosage: CODE NOT BROKEN
  6. STRONTIUM RANELATE [Suspect]
     Dosage: UNK
     Dates: start: 20101201
  7. BLINDED CGS 20267 [Suspect]
     Indication: BREAST CANCER
     Dosage: CODE NOT BROKEN
  8. LERCANIDIPINE [Suspect]
     Dosage: UNK
     Dates: start: 20101101
  9. COLECALCIFEROL [Concomitant]
     Dosage: UNK
     Dates: start: 20070101
  10. LEVOTHYROXINE SODIUM [Concomitant]
     Dosage: UNK
  11. METFORMIN HCL [Concomitant]
     Dosage: UNK
     Dates: start: 20070101
  12. THIAMINE HCL [Concomitant]
     Dosage: UNK
     Dates: start: 20060101
  13. FENOFIBRATE [Concomitant]
     Dosage: UNK
     Dates: start: 20050101
  14. DIGOXIN [Concomitant]
     Dosage: UNK
  15. CALCIUM CARBONATE [Suspect]
     Dosage: UNK
     Dates: start: 20070101
  16. SOTALOL HYDROCHLORIDE [Concomitant]
     Dosage: UNK
     Dates: start: 20030101

REACTIONS (1)
  - CATARACT [None]
